FAERS Safety Report 14533925 (Version 4)
Quarter: 2018Q2

REPORT INFORMATION
  Report Type: Spontaneous
  Country: US (occurrence: US)
  Receive Date: 20180215
  Receipt Date: 20180529
  Transmission Date: 20180711
  Serious: Yes (Death)
  Sender: FDA-Public Use
  Company Number: US-OTSUKA-2017_020983

PATIENT

DRUGS (9)
  1. BUSULFEX [Suspect]
     Active Substance: BUSULFAN
     Dosage: UNK
     Route: 065
     Dates: start: 2010
  2. CYCLOSPORINE. [Concomitant]
     Active Substance: CYCLOSPORINE
     Indication: PROPHYLAXIS AGAINST GRAFT VERSUS HOST DISEASE
     Dosage: 2.5 MG/KG, EVERY 12 HOURS DAY -2 AND CONTINUED THROUGH DAY +90, THEN WEANED OVER 10 WEEKS
     Route: 065
     Dates: start: 20110210
  3. CYCLOSPORINE. [Concomitant]
     Active Substance: CYCLOSPORINE
     Indication: IMMUNOSUPPRESSION
  4. FILGRASTIM [Concomitant]
     Active Substance: FILGRASTIM
     Indication: PROPHYLAXIS
     Dosage: 5 ?G/KG, EVERY 12 HOUR
     Route: 065
     Dates: start: 20110710
  5. BUSULFEX [Suspect]
     Active Substance: BUSULFAN
     Dosage: 0.7 MG/KG, EVERY 12 HOUR FOR THREE DOSES
     Route: 042
     Dates: start: 20110928, end: 20110929
  6. FLUDARABINE [Suspect]
     Active Substance: FLUDARABINE PHOSPHATE
     Indication: STEM CELL TRANSPLANT
     Dosage: 35 MG/M2, QD (PER DOSE FROM DAY -5 THROUGH DAY -2)
     Route: 042
     Dates: start: 20110930, end: 20111003
  7. CYCLOPHOSPHAMIDE. [Suspect]
     Active Substance: CYCLOPHOSPHAMIDE
     Indication: STEM CELL TRANSPLANT
     Dosage: 10 MG/KG, QD PER DOSE FROM DAY -5 THROUGH DAY -2
     Route: 042
     Dates: start: 20110930, end: 20111003
  8. THYMOGLOBULIN [Suspect]
     Active Substance: LAPINE T-LYMPHOCYTE IMMUNE GLOBULIN
     Indication: STEM CELL TRANSPLANT
     Dosage: 2.5 MG/KG ONCE PER DOSE FROM DAY -5 TO DAY -2
     Route: 042
     Dates: start: 20110930
  9. BUSULFEX [Suspect]
     Active Substance: BUSULFAN
     Indication: STEM CELL TRANSPLANT
     Dosage: 0.8 MG/KG, ONCE
     Route: 042
     Dates: start: 20110927

REACTIONS (1)
  - Human herpesvirus 6 infection [Fatal]

NARRATIVE: CASE EVENT DATE: 20120213
